FAERS Safety Report 17681615 (Version 4)
Quarter: 2020Q2

REPORT INFORMATION
  Report Type: Report from Study
  Country: CA (occurrence: CA)
  Receive Date: 20200417
  Receipt Date: 20200603
  Transmission Date: 20200714
  Serious: Yes (Other)
  Sender: FDA-Public Use
  Company Number: PHHY2018CA044548

PATIENT
  Age: 66 Year
  Sex: Male

DRUGS (6)
  1. OCTREOTIDE. [Concomitant]
     Active Substance: OCTREOTIDE
     Indication: CARCINOID TUMOUR
     Dosage: 100 UG, BID FOR 1  MONTH
     Route: 058
     Dates: start: 2017, end: 20170505
  2. SANDOSTATIN LAR DEPOT [Suspect]
     Active Substance: OCTREOTIDE ACETATE
     Dosage: 30 MG, EVERY 2 WEEKS
     Route: 030
     Dates: start: 20180716
  3. AFINITOR [Concomitant]
     Active Substance: EVEROLIMUS
     Indication: PRODUCT USED FOR UNKNOWN INDICATION
     Dosage: 5 MG, QD
     Route: 048
     Dates: start: 20190621
  4. SANDOSTATIN LAR DEPOT [Suspect]
     Active Substance: OCTREOTIDE ACETATE
     Dosage: 30 MG, EVERY 2 WEEKS
     Route: 030
     Dates: start: 20180618
  5. SANDOSTATIN LAR DEPOT [Suspect]
     Active Substance: OCTREOTIDE ACETATE
     Indication: CARCINOID TUMOUR
     Dosage: 30 MG, Q2W
     Route: 030
     Dates: start: 20170426
  6. SANDOSTATIN LAR DEPOT [Suspect]
     Active Substance: OCTREOTIDE ACETATE
     Dosage: 30 MG, EVERY 2 WEEKS
     Route: 030

REACTIONS (28)
  - Pneumonia [Recovered/Resolved]
  - Pyrexia [Recovered/Resolved]
  - Headache [Recovered/Resolved]
  - Hypophagia [Unknown]
  - Pain [Recovered/Resolved]
  - Blood pressure increased [Unknown]
  - Back pain [Recovered/Resolved]
  - Respiratory rate increased [Unknown]
  - Oral candidiasis [Unknown]
  - Dyspnoea [Recovered/Resolved]
  - Malignant neoplasm progression [Unknown]
  - Stress [Unknown]
  - Musculoskeletal pain [Recovered/Resolved]
  - Heart rate increased [Unknown]
  - Diarrhoea [Recovering/Resolving]
  - Odynophagia [Unknown]
  - Weight increased [Unknown]
  - White blood cell count decreased [Unknown]
  - Dysphagia [Unknown]
  - Fatigue [Unknown]
  - Inappropriate schedule of product administration [Unknown]
  - Weight decreased [Unknown]
  - Oropharyngeal discomfort [Unknown]
  - Decreased appetite [Unknown]
  - Pharyngitis streptococcal [Recovered/Resolved]
  - Metastases to liver [Unknown]
  - Malaise [Recovered/Resolved]
  - Nasopharyngitis [Unknown]

NARRATIVE: CASE EVENT DATE: 20180618
